FAERS Safety Report 8561602-4 (Version None)
Quarter: 2012Q3

REPORT INFORMATION
  Report Type: 
  Country: None (occurrence: None)
  Receive Date: 20120802
  Receipt Date: 20120716
  Transmission Date: 20120928
  Serious: No
  Sender: FDA-Public Use
  Company Number: US-ASTRAZENECA-2012SE49425

PATIENT
  Age: 77 Year
  Sex: Female
  Weight: 95.3 kg

DRUGS (6)
  1. SYMBICORT [Suspect]
     Indication: ASTHMA
     Dosage: 160/4.5 MCG, TWO PUFFS, TWO TIMES A DAY
     Route: 055
     Dates: start: 20080101, end: 20080515
  2. PRILOSEC [Concomitant]
  3. COREG [Concomitant]
  4. KLOR-CON [Concomitant]
  5. LOSARTAN POTASSIUM [Concomitant]
     Indication: HYPERTENSION
  6. SYMBICORT [Suspect]
     Dosage: 160/4.5 MCG, ONE PUFF, TWO TIMES A DAY
     Route: 055

REACTIONS (2)
  - INTENTIONAL DRUG MISUSE [None]
  - COUGH [None]
